FAERS Safety Report 5527305-5 (Version None)
Quarter: 2007Q4

REPORT INFORMATION
  Report Type: 
  Country: None (occurrence: None)
  Receive Date: 20071128
  Receipt Date: 20071123
  Transmission Date: 20080405
  Serious: Yes (Hospitalization)
  Sender: FDA-Public Use
  Company Number: B0492528A

PATIENT
  Age: 62 Year
  Sex: Male

DRUGS (1)
  1. ZENTEL [Suspect]
     Dosage: 2TABS PER DAY
     Route: 048
     Dates: start: 20071017, end: 20071018

REACTIONS (5)
  - DIARRHOEA [None]
  - HEPATIC FUNCTION ABNORMAL [None]
  - HEPATITIS [None]
  - PYREXIA [None]
  - VOMITING [None]
